FAERS Safety Report 17439299 (Version 2)
Quarter: 2020Q1

REPORT INFORMATION
  Report Type: Spontaneous
  Country: CN (occurrence: CN)
  Receive Date: 20200220
  Receipt Date: 20200304
  Transmission Date: 20200409
  Serious: Yes (Other)
  Sender: FDA-Public Use
  Company Number: CN-AMGEN-CHNSP2020025869

PATIENT

DRUGS (1)
  1. XGEVA [Suspect]
     Active Substance: DENOSUMAB
     Indication: BONE GIANT CELL TUMOUR
     Dosage: 120 MILLIGRAM, QMO
     Route: 058

REACTIONS (15)
  - Arterial injury [Unknown]
  - Impaired healing [Unknown]
  - Therapeutic product effect incomplete [Unknown]
  - Urinary retention postoperative [Unknown]
  - Postoperative wound infection [Unknown]
  - Hypoaesthesia [Unknown]
  - Nervous system disorder [Unknown]
  - Constipation [Unknown]
  - Urinary incontinence [Unknown]
  - Procedural haemorrhage [Unknown]
  - Urinary retention [Unknown]
  - Post procedural constipation [Unknown]
  - Anal incontinence [Unknown]
  - Bone giant cell tumour [Unknown]
  - Pain in extremity [Unknown]
